FAERS Safety Report 8042262-8 (Version None)
Quarter: 2012Q1

REPORT INFORMATION
  Report Type: 
  Country: None (occurrence: None)
  Receive Date: 20120112
  Receipt Date: 20111020
  Transmission Date: 20120608
  Serious: Yes (Other)
  Sender: FDA-Public Use
  Company Number: BR-ROCHE-1006293

PATIENT
  Age: 53 Year
  Sex: Female
  Weight: 84 kg

DRUGS (5)
  1. CLONAZEPAM [Suspect]
     Indication: PRODUCT USED FOR UNKNOWN INDICATION
  2. DICLOFENAC [Concomitant]
  3. METHYLDOPA [Concomitant]
  4. ASPIRIN [Concomitant]
  5. FENOTEROL INHALER [Concomitant]

REACTIONS (1)
  - MYOCARDIAL ISCHAEMIA [None]
